FAERS Safety Report 8874018 (Version 3)
Quarter: 2013Q2

REPORT INFORMATION
  Report Type: Spontaneous
  Country: JP (occurrence: JP)
  Receive Date: 20121023
  Receipt Date: 20130501
  Transmission Date: 20140414
  Serious: No
  Sender: FDA-Public Use
  Company Number: JP-PFIZER INC-2012260850

PATIENT
  Age: 41 Year
  Sex: Female

DRUGS (1)
  1. FOSPHENYTOIN SODIUM [Suspect]
     Dosage: 750 MG
     Dates: start: 20120827, end: 20120829

REACTIONS (1)
  - Oedema peripheral [Recovered/Resolved]
